FAERS Safety Report 11610986 (Version 1)
Quarter: 2015Q4

REPORT INFORMATION
  Report Type: Spontaneous
  Country: US (occurrence: US)
  Receive Date: 20151008
  Receipt Date: 20151008
  Transmission Date: 20160304
  Serious: No
  Sender: FDA-Public Use
  Company Number: US-PFIZER INC-2015323713

PATIENT
  Sex: Female

DRUGS (1)
  1. ADVIL [Suspect]
     Active Substance: IBUPROFEN
     Dosage: UNK

REACTIONS (7)
  - Throat tightness [Unknown]
  - Urticaria [Unknown]
  - Eye swelling [Unknown]
  - Pruritus [Unknown]
  - Reaction to drug excipients [Unknown]
  - Drug hypersensitivity [Unknown]
  - Palpitations [Unknown]
